FAERS Safety Report 4522097-0 (Version None)
Quarter: 2004Q4

REPORT INFORMATION
  Report Type: 
  Country: None (occurrence: None)
  Receive Date: 20041206
  Receipt Date: 20041122
  Transmission Date: 20050328
  Serious: Yes (Life-Threatening)
  Sender: FDA-Public Use
  Company Number: 2004243359JP

PATIENT
  Age: 71 Year
  Sex: Male
  Weight: 49.6 kg

DRUGS (7)
  1. CABERGOLINE [Suspect]
     Indication: PARKINSON'S DISEASE
     Dosage: 0.5 MG (0.5 MG) ORAL
     Route: 048
     Dates: start: 20040922, end: 20040927
  2. PERGOLIDE MESYLATE [Suspect]
     Indication: PARKINSON'S DISEASE
     Dosage: 500 MCG, ORAL
     Route: 048
     Dates: start: 20020101
  3. RISPERDAL [Suspect]
     Indication: BIPOLAR I DISORDER
     Dosage: ORAL
     Route: 048
     Dates: start: 20040713, end: 20040915
  4. ZOTEPINE (ZOTEPINE) [Suspect]
     Indication: BIPOLAR I DISORDER
     Dosage: ORAL
     Route: 048
     Dates: start: 20030905, end: 20040901
  5. LEVOMEPROMAZINE MALEATE (LEVOMEPROMAZINE MALEATE) [Suspect]
     Indication: BIPOLAR I DISORDER
     Dosage: 50 MG (50 MG), ORAL
     Route: 048
     Dates: start: 19971229, end: 20040915
  6. VALPROATE SODIUM [Concomitant]
  7. LITHIUM CARBONATE [Concomitant]

REACTIONS (4)
  - BIPOLAR I DISORDER [None]
  - DEHYDRATION [None]
  - NEUROLEPTIC MALIGNANT SYNDROME [None]
  - PARKINSON'S DISEASE [None]
